FAERS Safety Report 9814709 (Version 1)
Quarter: 2014Q1

REPORT INFORMATION
  Report Type: Spontaneous
  Country: US (occurrence: US)
  Receive Date: 20140113
  Receipt Date: 20140113
  Transmission Date: 20141002
  Serious: Yes (Hospitalization)
  Sender: FDA-Public Use
  Company Number: US-SANOFI-AVENTIS-2013SA006767

PATIENT
  Age: 80 Year
  Sex: Male
  Weight: 88.6 kg

DRUGS (14)
  1. DOCETAXEL [Suspect]
     Indication: PROSTATE CANCER
     Dosage: EVERY 21 DAYS
     Route: 051
     Dates: start: 20120215, end: 20120418
  2. DOCETAXEL [Suspect]
     Indication: PROSTATE CANCER
     Dosage: EVERY 21 DAYS
     Route: 051
     Dates: start: 20120509, end: 20120822
  3. INVESTIGATIONAL DRUG [Suspect]
     Indication: PROSTATE CANCER
  4. RETINOL [Concomitant]
     Indication: NUTRITIONAL SUPPLEMENTATION
     Route: 048
  5. ERGOCALCIFEROL [Concomitant]
     Indication: NUTRITIONAL SUPPLEMENTATION
     Route: 048
  6. MULTIVITAMINS [Concomitant]
     Indication: NUTRITIONAL SUPPLEMENTATION
     Route: 048
  7. FISH OIL [Concomitant]
     Indication: NUTRITIONAL SUPPLEMENTATION
     Route: 048
  8. UBIDECARENONE [Concomitant]
     Indication: NUTRITIONAL SUPPLEMENTATION
     Route: 048
  9. PREDNISONE [Concomitant]
     Indication: PROPHYLAXIS
     Route: 048
     Dates: start: 20120215
  10. DEXAMETHASONE [Concomitant]
     Indication: PROPHYLAXIS
     Dosage: 24 MG 1 IN 3 WEEKS
     Route: 048
     Dates: start: 20120214
  11. ZOLEDRONIC ACID [Concomitant]
     Indication: PROSTATE CANCER
     Dosage: 4 MG IN 1 MONTH
     Route: 051
     Dates: start: 20110715
  12. LEUPRORELIN ACETATE [Concomitant]
     Indication: PROSTATE CANCER
     Dosage: 22.5 MG, 1 IN 3 MONTHS
     Route: 030
     Dates: start: 2006
  13. OXYCODONE [Concomitant]
     Indication: PAIN
     Route: 048
  14. ALL OTHER THERAPEUTIC PRODUCTS [Concomitant]
     Indication: MUCOSAL INFLAMMATION
     Route: 048

REACTIONS (1)
  - Febrile neutropenia [Recovered/Resolved]
